FAERS Safety Report 4281039-6 (Version None)
Quarter: 2004Q1

REPORT INFORMATION
  Report Type: 
  Country: None (occurrence: None)
  Receive Date: 20040129
  Receipt Date: 20030620
  Transmission Date: 20041129
  Serious: No
  Sender: FDA-Public Use
  Company Number: US-BRISTOL-MYERS SQUIBB COMPANY-12307492

PATIENT
  Sex: Male

DRUGS (1)
  1. PLATINOL [Suspect]
     Indication: TESTIS CANCER
     Dates: start: 19990101, end: 19990101

REACTIONS (1)
  - PHOTOPHOBIA [None]
